FAERS Safety Report 5614301-2 (Version None)
Quarter: 2008Q1

REPORT INFORMATION
  Report Type: 
  Country: None (occurrence: None)
  Receive Date: 20080130
  Receipt Date: 20070420
  Transmission Date: 20080703
  Serious: No
  Sender: FDA-Public Use
  Company Number: NL01PV07.02270

PATIENT
  Sex: Female

DRUGS (3)
  1. PAROXETINE [Suspect]
     Indication: DEPRESSION
     Dosage: 20 MG
     Dates: start: 19991101, end: 20030101
  2. OMEPRAZOLE [Concomitant]
  3. TEMAZEPAM [Concomitant]

REACTIONS (12)
  - ADVERSE EVENT [None]
  - AGITATION [None]
  - ALCOHOL ABUSE [None]
  - DEPRESSED MOOD [None]
  - DIARRHOEA [None]
  - DRUG WITHDRAWAL SYNDROME [None]
  - HEAD TITUBATION [None]
  - HEADACHE [None]
  - NECK PAIN [None]
  - ORGASM ABNORMAL [None]
  - SLEEP DISORDER [None]
  - VOMITING [None]
